FAERS Safety Report 4667767-9 (Version None)
Quarter: 2005Q2

REPORT INFORMATION
  Report Type: 
  Country: None (occurrence: None)
  Receive Date: 20050520
  Receipt Date: 20040920
  Transmission Date: 20051028
  Serious: Yes (Life-Threatening, Hospitalization)
  Sender: FDA-Public Use
  Company Number: 2004-0007467

PATIENT
  Age: 61 Year
  Sex: Female

DRUGS (14)
  1. HEPSERA [Suspect]
     Dosage: 10MG PER DAY
     Route: 048
     Dates: start: 20040312
  2. ZEFFIX [Suspect]
     Dosage: 100MG PER DAY
     Route: 048
     Dates: start: 20000816
  3. TOCO 500 [Suspect]
     Indication: DRUG USE FOR UNKNOWN INDICATION
     Dosage: 500MG TWICE PER DAY
     Route: 048
     Dates: end: 20040905
  4. SOPROL [Suspect]
     Indication: HYPERTENSION
     Dosage: 10MG PER DAY
     Route: 048
     Dates: end: 20040905
  5. LASIX [Suspect]
     Indication: HYPERTENSION
     Dosage: 20MG PER DAY
     Route: 048
  6. ELISOR [Concomitant]
  7. VASTAREL [Concomitant]
  8. GAVISCON [Concomitant]
  9. ZOVIRAX [Concomitant]
  10. ADVIL [Concomitant]
     Indication: HEADACHE
  11. PREVISCAN [Concomitant]
  12. FLUDEX [Concomitant]
  13. DIFFU K [Concomitant]
  14. ASPEGIC 1000 [Concomitant]

REACTIONS (11)
  - APHASIA [None]
  - ATRIAL FIBRILLATION [None]
  - BACK PAIN [None]
  - CHEST PAIN [None]
  - HEMIPARESIS [None]
  - HYPERCHOLESTEROLAEMIA [None]
  - HYPERTRIGLYCERIDAEMIA [None]
  - ISCHAEMIC STROKE [None]
  - MALAISE [None]
  - PALPITATIONS [None]
  - PULMONARY EMBOLISM [None]
